FAERS Safety Report 7150352-7 (Version None)
Quarter: 2010Q4

REPORT INFORMATION
  Report Type: 
  Country: None (occurrence: None)
  Receive Date: 20101210
  Receipt Date: 20101129
  Transmission Date: 20110411
  Serious: Yes (Hospitalization)
  Sender: FDA-Public Use
  Company Number: US-JNJFOC-20101109143

PATIENT
  Age: 33 Year
  Sex: Male
  Weight: 107 kg

DRUGS (2)
  1. ACETAMINOPHEN [Suspect]
     Route: 048
  2. ACETAMINOPHEN [Suspect]
     Indication: TOOTHACHE
     Route: 048

REACTIONS (8)
  - ABDOMINAL PAIN [None]
  - COAGULOPATHY [None]
  - HAEMATEMESIS [None]
  - HEPATIC ENZYME INCREASED [None]
  - HEPATIC STEATOSIS [None]
  - NAUSEA [None]
  - OVERDOSE [None]
  - TACHYCARDIA [None]
